FAERS Safety Report 19596976 (Version 1)
Quarter: 2021Q3

REPORT INFORMATION
  Report Type: Spontaneous
  Country: US (occurrence: US)
  Receive Date: 20210722
  Receipt Date: 20210722
  Transmission Date: 20211014
  Serious: No
  Sender: FDA-Public Use
  Company Number: US-BAUSCH-BL-2021-020111

PATIENT
  Age: 83 Year
  Sex: Female

DRUGS (1)
  1. LACRISERT [Suspect]
     Active Substance: HYDROXYPROPYL CELLULOSE
     Indication: SJOGREN^S SYNDROME
     Dosage: 5 WITH UNSPECIFIED UNITS, (ABOUT 2 WEEKS AGO)
     Route: 047
     Dates: start: 202105

REACTIONS (6)
  - Product use complaint [Unknown]
  - Product delivery mechanism issue [Unknown]
  - Dry eye [Unknown]
  - Product solubility abnormal [Unknown]
  - Drug ineffective [Unknown]
  - Foreign body sensation in eyes [Unknown]

NARRATIVE: CASE EVENT DATE: 2021
